FAERS Safety Report 24018530 (Version 1)
Quarter: 2024Q2

REPORT INFORMATION
  Report Type: Report from Study
  Country: US (occurrence: US)
  Receive Date: 20240627
  Receipt Date: 20240627
  Transmission Date: 20240716
  Serious: Yes (Other)
  Sender: FDA-Public Use
  Company Number: US-ROCHE-10000008563

PATIENT
  Age: 72 Year
  Sex: Female

DRUGS (2)
  1. RITUXAN [Suspect]
     Active Substance: RITUXIMAB
     Indication: Pemphigoid
     Dosage: MONTHS 1 + 2: INFUSE 1000MG INTRAVENOUSLY WEEKLY ON WEEKS 1-3, THEN WEEKS 5-7. MONTHS 3-6: INFUSE 10
     Route: 042
  2. RITUXAN [Suspect]
     Active Substance: RITUXIMAB
     Indication: Rheumatoid arthritis

REACTIONS (2)
  - Cerebrovascular accident [Unknown]
  - Atrial fibrillation [Unknown]
